FAERS Safety Report 9164663 (Version 1)
Quarter: 2013Q1

REPORT INFORMATION
  Report Type: Spontaneous
  Country: DE (occurrence: DE)
  Receive Date: 20130315
  Receipt Date: 20130315
  Transmission Date: 20140127
  Serious: Yes (Other)
  Sender: FDA-Public Use
  Company Number: DE-ROXANE LABORATORIES, INC.-2013-RO-00365RO

PATIENT
  Age: 77 Year
  Sex: Male

DRUGS (11)
  1. RISPERIDONE [Suspect]
     Dosage: 0.75 MG
  2. RISPERIDONE [Suspect]
     Dosage: 0.5 MG
     Route: 048
  3. RISPERIDONE [Suspect]
     Dosage: 1 MG
     Route: 048
  4. MEMANTINE [Suspect]
     Dosage: 20 MG
     Route: 048
  5. ACETYLSALICYLIC ACID [Suspect]
     Dosage: 100 MG
     Route: 048
  6. DIGITOXIN [Suspect]
     Dosage: 0.07 MG
     Route: 048
  7. METOPROLOL SUCCINATE [Suspect]
     Dosage: 47.5 MG
  8. METOPROLOL SUCCINATE [Suspect]
     Dosage: 23.75 MG
     Route: 048
  9. TORASEMIDE [Suspect]
     Dosage: 5 MG
     Route: 048
  10. TORASEMIDE [Suspect]
     Dosage: 2.5 MG
     Route: 048
  11. DORZOLAMIDE [Suspect]
     Indication: GLAUCOMA
     Route: 031

REACTIONS (8)
  - Psychotic disorder [Unknown]
  - Parkinson^s disease [Unknown]
  - Muscle rigidity [Unknown]
  - Pleurothotonus [Unknown]
  - Extrapyramidal disorder [Unknown]
  - Gaze palsy [Unknown]
  - Gait disturbance [Unknown]
  - Cognitive disorder [Unknown]
